FAERS Safety Report 10929875 (Version 1)
Quarter: 2015Q1

REPORT INFORMATION
  Report Type: Spontaneous
  Country: US (occurrence: US)
  Receive Date: 20150319
  Receipt Date: 20150319
  Transmission Date: 20150721
  Serious: Yes (Hospitalization)
  Sender: FDA-Public Use
  Company Number: US-SUN PHARMACEUTICAL INDUSTRIES LTD-2015SUN00735

PATIENT
  Age: 76 Year
  Sex: Male

DRUGS (2)
  1. NITROFURANTOIN ORAL SUSPENSION USP, 25 MG/5 ML [Suspect]
     Active Substance: NITROFURANTOIN
     Indication: PROPHYLAXIS
  2. NITROFURANTOIN ORAL SUSPENSION USP, 25 MG/5 ML [Suspect]
     Active Substance: NITROFURANTOIN
     Indication: URINARY TRACT INFECTION
     Dosage: UNK
     Route: 065

REACTIONS (5)
  - Interstitial lung disease [Recovering/Resolving]
  - Respiratory distress [None]
  - Dysphagia [None]
  - Blood pressure decreased [None]
  - Weight decreased [None]
